FAERS Safety Report 4333497-6 (Version None)
Quarter: 2004Q1

REPORT INFORMATION
  Report Type: 
  Country: None (occurrence: None)
  Receive Date: 20040325
  Receipt Date: 20040105
  Transmission Date: 20041129
  Serious: No
  Sender: FDA-Public Use
  Company Number: USA040155741

PATIENT
  Age: 75 Year
  Sex: Female
  Weight: 73 kg

DRUGS (5)
  1. FORTEO [Suspect]
     Indication: OSTEOPOROSIS
     Dates: start: 20030501
  2. EVISTA [Concomitant]
  3. SYNTESTAN (CLOPREDNOL) [Concomitant]
  4. VIOXX [Concomitant]
  5. METHADONE HCL [Concomitant]

REACTIONS (1)
  - OEDEMA PERIPHERAL [None]
